FAERS Safety Report 14558101 (Version 1)
Quarter: 2018Q1

REPORT INFORMATION
  Report Type: Other
  Country: IT (occurrence: IT)
  Receive Date: 20180221
  Receipt Date: 20180221
  Transmission Date: 20180509
  Serious: Yes (Death, Life-Threatening)
  Sender: FDA-Public Use
  Company Number: IT-CELLTRION INC.-2017IT004405

PATIENT

DRUGS (15)
  1. PREDNISONE. [Concomitant]
     Active Substance: PREDNISONE
     Indication: COLITIS ULCERATIVE
     Dosage: 30 MG, UNK
     Route: 048
     Dates: start: 20170215, end: 20170331
  2. AZATHIOPRINE. [Concomitant]
     Active Substance: AZATHIOPRINE
     Indication: COLITIS ULCERATIVE
     Dosage: 150 MG, UNK
     Dates: start: 20140501, end: 20170331
  3. MESALAZINE [Concomitant]
     Active Substance: MESALAMINE
     Indication: COLITIS ULCERATIVE
     Dosage: 3600 MG, UNK
     Dates: start: 20131001, end: 20170331
  4. CEFOTAXIME [Concomitant]
     Active Substance: CEFOTAXIME SODIUM
     Indication: PYREXIA
     Dosage: 3 G, UNK
     Dates: start: 20170329, end: 20170331
  5. DAFLON /00426001/ [Concomitant]
     Active Substance: DIOSMIN
     Indication: HAEMORRHOIDS
     Dosage: 1 U, UNK
     Route: 048
  6. CHLORPHENAMINE [Concomitant]
     Active Substance: CHLORPHENIRAMINE MALEATE
     Indication: PREMEDICATION
     Dosage: 12.5 MG/IV
     Route: 042
  7. REMSIMA [Suspect]
     Active Substance: INFLIXIMAB
     Indication: COLITIS ULCERATIVE
     Dosage: 315 MG, CYCLIC
     Route: 042
     Dates: start: 20170331, end: 20170331
  8. PARACETAMOL [Concomitant]
     Active Substance: ACETAMINOPHEN
     Indication: PREMEDICATION
     Dosage: 1G/IV
     Route: 042
  9. OMEPRAZOLE. [Concomitant]
     Active Substance: OMEPRAZOLE
     Indication: HYPERCHLORHYDRIA
     Dosage: 40 MG, UNK
     Route: 048
     Dates: start: 20170314, end: 20170331
  10. CITROVIRAX [Concomitant]
     Indication: CYTOMEGALOVIRUS INFECTION
     Dosage: 640 MG, UNK
     Dates: start: 20170329, end: 20170331
  11. FONDAPARINUX SODIUM. [Concomitant]
     Active Substance: FONDAPARINUX SODIUM
     Indication: BUDD-CHIARI SYNDROME
     Dosage: 2.5 MG, UNK
     Route: 058
     Dates: start: 20170315, end: 20170331
  12. GANCICLOVIR. [Concomitant]
     Active Substance: GANCICLOVIR
     Indication: CYTOMEGALOVIRUS INFECTION
     Dosage: 640 MG/DAY IV
     Route: 042
  13. METHYLPREDNISOLONE. [Concomitant]
     Active Substance: METHYLPREDNISOLONE
     Indication: PREMEDICATION
     Dosage: 125 MG/IV
     Route: 042
  14. HUMAN ALBUMIN [Concomitant]
     Active Substance: ALBUMIN HUMAN
     Indication: HYPOALBUMINAEMIA
     Dosage: 20G/DAY/IV
     Route: 042
  15. URSODEOXYCHOLIC ACID [Concomitant]
     Active Substance: URSODIOL
     Indication: BUDD-CHIARI SYNDROME

REACTIONS (5)
  - Haemorrhage [Fatal]
  - Coma [Fatal]
  - Encephalomyelitis [Fatal]
  - Brain stem haemorrhage [Fatal]
  - Areflexia [Fatal]

NARRATIVE: CASE EVENT DATE: 20170331
